FAERS Safety Report 6102962-3 (Version None)
Quarter: 2009Q1

REPORT INFORMATION
  Report Type: 
  Country: None (occurrence: None)
  Receive Date: 20090305
  Receipt Date: 20090219
  Transmission Date: 20090719
  Serious: Yes (Hospitalization)
  Sender: FDA-Public Use
  Company Number: PHHY2009CR05949

PATIENT
  Age: 65 Year
  Sex: Male

DRUGS (5)
  1. DIOVAN [Suspect]
     Indication: HYPERTENSION
     Dosage: 80 MG
     Route: 048
  2. DIOVAN [Suspect]
     Dosage: 160 MG
     Route: 048
  3. DIOVAN [Suspect]
     Dosage: 320 MG PER DAY
     Route: 048
  4. ZOCOR [Concomitant]
     Dosage: 40 MG PER DAY
  5. METFORMIN [Concomitant]
     Dosage: 500 MG, TID

REACTIONS (3)
  - ANGIOPLASTY [None]
  - ISCHAEMIA [None]
  - STENT PLACEMENT [None]
